FAERS Safety Report 6153840-5 (Version None)
Quarter: 2009Q2

REPORT INFORMATION
  Report Type: 
  Country: None (occurrence: None)
  Receive Date: 20090414
  Receipt Date: 20070503
  Transmission Date: 20091009
  Serious: Yes (Hospitalization, Other)
  Sender: FDA-Public Use
  Company Number: US-ASTRAZENECA-2006UW04429

PATIENT
  Age: 40 Year
  Sex: Female
  Weight: 68.2 kg

DRUGS (43)
  1. SEROQUEL [Suspect]
     Indication: DEPRESSION
     Route: 048
     Dates: start: 20031201, end: 20040101
  2. SEROQUEL [Suspect]
     Dosage: 25-200 MG
     Route: 048
     Dates: start: 20031211
  3. MORPHINE SULFATE [Concomitant]
  4. DESIPRAMINE HCL [Concomitant]
  5. NEXIUM [Concomitant]
  6. LOTREL [Concomitant]
  7. AMITRIPTYLINE HCL [Concomitant]
  8. CLONAZEPAM [Concomitant]
  9. HYOSCYAMINE [Concomitant]
  10. PHENERGAN [Concomitant]
  11. LEXAPRO [Concomitant]
  12. ENDOCET [Concomitant]
  13. DILTIAZEM [Concomitant]
  14. ACCUPRIL [Concomitant]
  15. ZITHROMAX [Concomitant]
  16. INDERAL [Concomitant]
  17. CYCLOBENZAPRINE [Concomitant]
  18. BENAZEPRIL HYDROCHLORIDE [Concomitant]
  19. METOCLOPRAMIDE [Concomitant]
  20. NYSTATIN [Concomitant]
  21. GABAPENTIN [Concomitant]
  22. OXYCONTIN [Concomitant]
  23. LOVENOX [Concomitant]
  24. AMBIN [Concomitant]
  25. HYDROMORPHON [Concomitant]
  26. PROPOFOL [Concomitant]
  27. GLUCAGON [Concomitant]
  28. ZEMURON [Concomitant]
  29. GLYCOPYRROLATE [Concomitant]
  30. VICODIN [Concomitant]
  31. KLONOPIN [Concomitant]
  32. PRINIVIL [Concomitant]
  33. ORETIC [Concomitant]
  34. PROTONIX [Concomitant]
  35. FERROUS SULFATE TAB [Concomitant]
  36. POTASSIUM CHLORIDE [Concomitant]
  37. FLEXERIL [Concomitant]
  38. FLUCONAZOLE [Concomitant]
  39. CREON [Concomitant]
  40. PREDNISOLONE [Concomitant]
  41. SUBLIMAZE PRESERVATIVE FREE [Concomitant]
  42. ZOFRAN [Concomitant]
  43. SENOKOT [Concomitant]

REACTIONS (23)
  - ABDOMINAL PAIN [None]
  - ABDOMINAL PAIN UPPER [None]
  - ARTHRALGIA [None]
  - CONTUSION [None]
  - DYSPEPSIA [None]
  - GASTRIC POLYPS [None]
  - GASTROENTERITIS [None]
  - HAEMORRHOIDS [None]
  - HEADACHE [None]
  - HYPERLIPIDAEMIA [None]
  - INTERVERTEBRAL DISC DEGENERATION [None]
  - IRON DEFICIENCY ANAEMIA [None]
  - LIGAMENT CALCIFICATION [None]
  - LYMPHADENITIS [None]
  - MAMMOPLASTY [None]
  - NAUSEA [None]
  - OESOPHAGEAL CANDIDIASIS [None]
  - OVARIAN CYST [None]
  - PANCREATIC DUCT STENOSIS [None]
  - PANCREATITIS [None]
  - PARAESTHESIA [None]
  - POST CHOLECYSTECTOMY SYNDROME [None]
  - SKIN LACERATION [None]
